FAERS Safety Report 5198692-5 (Version None)
Quarter: 2007Q1

REPORT INFORMATION
  Report Type: 
  Country: None (occurrence: None)
  Receive Date: 20070104
  Receipt Date: 20061227
  Transmission Date: 20070707
  Serious: Yes (Hospitalization, Disabling)
  Sender: FDA-Public Use
  Company Number: 2006SE06620

PATIENT
  Age: 27070 Day
  Sex: Male

DRUGS (15)
  1. BLOPRESS TABLETS 8 [Suspect]
     Indication: HYPERTENSION
     Route: 048
     Dates: start: 20060929, end: 20061129
  2. BLOPRESS TABLETS 8 [Suspect]
     Route: 048
     Dates: start: 20061218
  3. LANSAP 800 [Concomitant]
     Route: 048
     Dates: start: 20061115, end: 20061121
  4. NOVORAPID [Concomitant]
     Indication: DIABETES MELLITUS
     Dosage: 26 UT (MORNING 10 UT, LUNCH TIME 8 UT, EVENING 8 UT)
     Route: 042
     Dates: start: 20050711
  5. LANTUS [Concomitant]
     Indication: DIABETES MELLITUS
     Route: 042
     Dates: start: 20050725, end: 20061129
  6. GASMOTIN [Concomitant]
     Indication: DIABETIC GASTROENTEROPATHY
     Route: 048
     Dates: start: 20050713, end: 20061129
  7. GASMOTIN [Concomitant]
     Route: 048
  8. KINEDAK [Concomitant]
     Indication: DIABETIC NEUROPATHY
     Route: 048
     Dates: start: 20050818, end: 20061129
  9. KINEDAK [Concomitant]
     Route: 048
  10. CYANOCOBALAMIN [Concomitant]
     Indication: DIABETIC NEUROPATHY
     Route: 048
     Dates: start: 20060113, end: 20061129
  11. CYANOCOBALAMIN [Concomitant]
     Route: 048
  12. MARZULENE S [Concomitant]
     Indication: GASTRITIS
     Route: 048
     Dates: start: 20060223, end: 20061129
  13. MARZULENE S [Concomitant]
     Route: 048
  14. PURSENNIDE [Concomitant]
     Indication: CONSTIPATION
     Route: 048
     Dates: start: 20060929, end: 20061129
  15. PURSENNIDE [Concomitant]
     Route: 048

REACTIONS (1)
  - CEREBRAL INFARCTION [None]
